FAERS Safety Report 10285809 (Version 4)
Quarter: 2016Q1

REPORT INFORMATION
  Report Type: Report from Study
  Country: US (occurrence: US)
  Receive Date: 20140709
  Receipt Date: 20160316
  Transmission Date: 20160525
  Serious: Yes (Death, Hospitalization, Other)
  Sender: FDA-Public Use
  Company Number: US-ALEXION PHARMACEUTICALS INC.-A201402687

PATIENT
  Sex: Female

DRUGS (3)
  1. ANTIBIOTIC [Suspect]
     Active Substance: UNSPECIFIED INGREDIENT
     Indication: PROPHYLAXIS
     Dosage: UNK
     Route: 065
  2. SOLIRIS [Suspect]
     Active Substance: ECULIZUMAB
     Dosage: UNK
     Route: 042
  3. SOLIRIS [Suspect]
     Active Substance: ECULIZUMAB
     Indication: HAEMOLYTIC URAEMIC SYNDROME
     Dosage: UNK
     Route: 042

REACTIONS (9)
  - Death [Fatal]
  - Malaise [Unknown]
  - Dyspnoea [Unknown]
  - Mental status changes [Unknown]
  - Nausea [Unknown]
  - Lung neoplasm malignant [Unknown]
  - Memory impairment [Unknown]
  - Fatigue [Unknown]
  - Unevaluable event [Unknown]
